FAERS Safety Report 16398528 (Version 1)
Quarter: 2019Q2

REPORT INFORMATION
  Report Type: Spontaneous
  Country: US (occurrence: US)
  Receive Date: 20190606
  Receipt Date: 20190606
  Transmission Date: 20190711
  Serious: Yes (Other)
  Sender: FDA-Public Use
  Company Number: US-ASTRAZENECA-2019SE83049

PATIENT
  Sex: Female

DRUGS (1)
  1. NEXIUM 24HR [Suspect]
     Active Substance: ESOMEPRAZOLE MAGNESIUM
     Dosage: 2 DF DAILY (I HAVE TO TAKE 2 NEXIUM 24HR CAPSULES PER DAY)
     Route: 048

REACTIONS (2)
  - Intentional product misuse [Unknown]
  - Myocardial infarction [Unknown]
